FAERS Safety Report 11684197 (Version 1)
Quarter: 2015Q4

REPORT INFORMATION
  Report Type: Spontaneous
  Country: GR (occurrence: GR)
  Receive Date: 20151029
  Receipt Date: 20151029
  Transmission Date: 20160304
  Serious: Yes (Other)
  Sender: FDA-Public Use
  Company Number: GR-PFIZER INC-2015361161

PATIENT
  Age: 58 Year
  Sex: Female

DRUGS (4)
  1. MORPHINE SULFATE. [Suspect]
     Active Substance: MORPHINE SULFATE
     Indication: NEURALGIA
     Dosage: 2 MG, DAILY
     Route: 050
  2. MORPHINE SULFATE. [Suspect]
     Active Substance: MORPHINE SULFATE
     Dosage: 200 MG, DAILY
     Route: 048
  3. FENTANYL. [Suspect]
     Active Substance: FENTANYL
     Indication: NEURALGIA
     Dosage: 75 ?G/H
  4. CLONIDINE. [Suspect]
     Active Substance: CLONIDINE
     Indication: NEURALGIA
     Dosage: 50 UG, DAILY
     Route: 050

REACTIONS (2)
  - Ileus paralytic [Unknown]
  - Major depression [Unknown]
